FAERS Safety Report 8029859-6 (Version None)
Quarter: 2012Q1

REPORT INFORMATION
  Report Type: 
  Country: None (occurrence: None)
  Receive Date: 20120109
  Receipt Date: 20111227
  Transmission Date: 20120608
  Serious: Yes (Other)
  Sender: FDA-Public Use
  Company Number: US-ELI_LILLY_AND_COMPANY-US201201000225

PATIENT
  Sex: Male

DRUGS (4)
  1. HUMALOG [Suspect]
     Dosage: UNK UNK, OTHER
     Route: 065
  2. LANTUS [Concomitant]
     Dosage: 3 U, UNKNOWN
     Route: 065
     Dates: end: 20111226
  3. HUMALOG [Suspect]
     Indication: TYPE 2 DIABETES MELLITUS
     Dosage: UNK, OTHER
     Route: 065
  4. NOVOLOG [Concomitant]

REACTIONS (5)
  - TYPE 1 DIABETES MELLITUS [None]
  - INCORRECT DOSE ADMINISTERED [None]
  - DRUG DISPENSING ERROR [None]
  - BLOOD GLUCOSE DECREASED [None]
  - PANCREATIC INSUFFICIENCY [None]
